FAERS Safety Report 22324938 (Version 1)
Quarter: 2023Q2

REPORT INFORMATION
  Report Type: Spontaneous
  Country: US (occurrence: None)
  Receive Date: 20230514
  Receipt Date: 20230514
  Transmission Date: 20230722
  Serious: Yes (Hospitalization)
  Sender: FDA-Public Use
  Company Number: None

PATIENT
  Age: 52 Year
  Sex: Female
  Weight: 67.05 kg

DRUGS (2)
  1. HERBALS\TETRAHYDROCANNABINOL UNSPECIFIED [Suspect]
     Active Substance: HERBALS\TETRAHYDROCANNABINOL UNSPECIFIED
     Indication: Product used for unknown indication
     Dates: start: 20230512, end: 20230512
  2. LEXAPRO [Concomitant]
     Active Substance: ESCITALOPRAM OXALATE

REACTIONS (7)
  - Product label confusion [None]
  - Confusional state [None]
  - Gait inability [None]
  - Aphasia [None]
  - Near death experience [None]
  - Fear [None]
  - Drug screen positive [None]

NARRATIVE: CASE EVENT DATE: 20230512
